FAERS Safety Report 7873817-9 (Version None)
Quarter: 2011Q4

REPORT INFORMATION
  Report Type: 
  Country: None (occurrence: None)
  Receive Date: 20111030
  Receipt Date: 20110511
  Transmission Date: 20120403
  Serious: No
  Sender: FDA-Public Use
  Company Number: US-AMGEN-USASP2011024293

PATIENT
  Age: 41 Year
  Sex: Female
  Weight: 106.58 kg

DRUGS (7)
  1. TRICOR [Concomitant]
     Dosage: 48 MG, UNK
     Route: 048
  2. ULTRAM [Concomitant]
     Dosage: 50 MG, UNK
     Route: 048
  3. LISINOPRIL [Concomitant]
     Dosage: 5 MG, UNK
     Route: 048
  4. PRAVASTATIN [Concomitant]
     Dosage: 20 MG, UNK
     Route: 048
  5. ENBREL [Suspect]
     Indication: PRODUCT USED FOR UNKNOWN INDICATION
     Dosage: 50 MG, QWK
     Route: 058
  6. PREDNISONE [Concomitant]
     Dosage: 1 MG, UNK
     Route: 048
  7. METOPROLOL [Concomitant]
     Dosage: 50 MG, UNK
     Route: 048

REACTIONS (1)
  - HEADACHE [None]
